FAERS Safety Report 8613111 (Version 2)
Quarter: 2014Q1

REPORT INFORMATION
  Report Type: Spontaneous
  Country: US (occurrence: None)
  Receive Date: 20120323
  Receipt Date: 20140306
  Transmission Date: 20141002
  Serious: Yes (Other)
  Sender: FDA-Public Use
  Company Number: 163-21880-11080944

PATIENT
  Age: 69 Year
  Sex: Female
  Weight: 83.5 kg

DRUGS (12)
  1. REVLIMID [Suspect]
     Indication: PLASMA CELL MYELOMA
     Dosage: 10 MG, X28, PO
     Route: 048
     Dates: start: 20110325
  2. OSCAL D3 (CALCIUM CARBONATE) [Concomitant]
  3. ZOMETA (ZOLEDRONIC ACID) [Concomitant]
  4. WARFARIN SODIUM [Concomitant]
  5. ATENOLOL (ATENOLOL) [Concomitant]
  6. CAVAN-X (VITAMIN B12 AND FOLIC ACID) [Concomitant]
  7. HYDRALAZINE HYDROCHLORIDE [Concomitant]
  8. DIOVAN HCT (CO-DIOVAN) [Concomitant]
  9. GABAPENTIN (GABAPENTIN) [Concomitant]
  10. KLOR CON (POTASSIUIM CHLORIDE) [Concomitant]
  11. ESTRADIOL (ESTRADIOL) [Concomitant]
  12. FOLBIC HEPAGRISEVIT FORTE-N TABLET (TABLETS) [Concomitant]

REACTIONS (1)
  - Thrombosis [None]
